FAERS Safety Report 17500344 (Version 1)
Quarter: 2020Q1

REPORT INFORMATION
  Report Type: Spontaneous
  Country: US (occurrence: US)
  Receive Date: 20200305
  Receipt Date: 20200305
  Transmission Date: 20200409
  Serious: No
  Sender: FDA-Public Use
  Company Number: US-GLENMARK PHARMACEUTICALS-2020GMK045342

PATIENT

DRUGS (1)
  1. MUPIROCIN OINTMENT USP, 2% [Suspect]
     Active Substance: MUPIROCIN
     Indication: PREOPERATIVE CARE
     Dosage: UNK, BID (ONCE IN MORNING AND ONCE IN EVENING IN BOTH NOSTRILS)
     Route: 045

REACTIONS (3)
  - Product prescribing error [Unknown]
  - Incorrect route of product administration [Unknown]
  - No adverse event [Unknown]
